FAERS Safety Report 16542161 (Version 2)
Quarter: 2019Q3

REPORT INFORMATION
  Report Type: Spontaneous
  Country: US (occurrence: US)
  Receive Date: 20190708
  Receipt Date: 20190715
  Transmission Date: 20191004
  Serious: No
  Sender: FDA-Public Use
  Company Number: US-009507513-1907USA001290

PATIENT
  Age: 66 Year
  Sex: Female

DRUGS (2)
  1. ASMANEX [Suspect]
     Active Substance: MOMETASONE FUROATE
     Dosage: 110 MICROGRAM, ONCE A DAY IN THE EVENING
     Route: 055
     Dates: start: 201906
  2. ASMANEX [Suspect]
     Active Substance: MOMETASONE FUROATE
     Dosage: 110 MICROGRAM, ONCE A DAY IN THE EVENING
     Route: 055

REACTIONS (3)
  - Product quality issue [Unknown]
  - Product availability issue [Unknown]
  - Poor quality device used [Unknown]

NARRATIVE: CASE EVENT DATE: 201906
